FAERS Safety Report 9729977 (Version 1)
Quarter: 2013Q4

REPORT INFORMATION
  Report Type: Spontaneous
  Country: MX (occurrence: MX)
  Receive Date: 20131204
  Receipt Date: 20131204
  Transmission Date: 20140711
  Serious: Yes (Other)
  Sender: FDA-Public Use
  Company Number: PHHY2013MX139188

PATIENT
  Age: 93 Year
  Sex: Female

DRUGS (2)
  1. CO-DIOVAN [Suspect]
     Indication: HYPERTENSION
     Dosage: 1 DF, DAILY (VALS 160 MG, HYDR 12.5 MG)
     Route: 048
     Dates: start: 20121127, end: 201305
  2. DIABION                            /07633301/ [Concomitant]
     Indication: APPETITE DISORDER
     Dosage: 1 DF, DAILY
     Route: 048
     Dates: start: 2012

REACTIONS (4)
  - Blindness [Not Recovered/Not Resolved]
  - Eating disorder [Recovered/Resolved]
  - Diabetes mellitus inadequate control [Unknown]
  - Depression [Recovered/Resolved]
